FAERS Safety Report 4341907-3 (Version None)
Quarter: 2004Q2

REPORT INFORMATION
  Report Type: 
  Country: None (occurrence: None)
  Receive Date: 20040415
  Receipt Date: 20040331
  Transmission Date: 20050107
  Serious: Yes (Other)
  Sender: FDA-Public Use
  Company Number: US_010463440

PATIENT
  Sex: Male

DRUGS (1)
  1. ILETIN I [Suspect]

REACTIONS (3)
  - BLINDNESS [None]
  - CARDIAC DISORDER [None]
  - RENAL FAILURE [None]
